FAERS Safety Report 6334895-1 (Version None)
Quarter: 2009Q3

REPORT INFORMATION
  Report Type: 
  Country: None (occurrence: None)
  Receive Date: 20090827
  Receipt Date: 20090819
  Transmission Date: 20100115
  Serious: Yes (Other)
  Sender: FDA-Public Use
  Company Number: HA09-067-AE

PATIENT
  Age: 69 Year
  Sex: Female
  Weight: 69.8539 kg

DRUGS (6)
  1. TRAMADOL HCL TABLETS [Suspect]
     Indication: PAIN
     Dosage: 2 TAB Q6H, PRN
     Dates: start: 20090430, end: 20090811
  2. LYRICA [Suspect]
     Dosage: 1 TABLET BID
     Dates: start: 20090420, end: 20090501
  3. SPIRIVA [Concomitant]
  4. ADVAIR HFA [Concomitant]
  5. THYROID TAB [Concomitant]
  6. PREMARIN [Concomitant]

REACTIONS (2)
  - LEUKOPENIA [None]
  - PANCYTOPENIA [None]
